FAERS Safety Report 7258455-3 (Version None)
Quarter: 2011Q1

REPORT INFORMATION
  Report Type: 
  Country: None (occurrence: None)
  Receive Date: 20110129
  Receipt Date: 20100816
  Transmission Date: 20110831
  Serious: No
  Sender: FDA-Public Use
  Company Number: US-ABBOTT-10P-163-0665139-00

PATIENT
  Sex: Male
  Weight: 92.616 kg

DRUGS (2)
  1. HUMIRA [Suspect]
     Indication: CROHN'S DISEASE
     Dates: start: 20090801, end: 20100725
  2. BENICAR HCT [Concomitant]
     Indication: HYPERTENSION

REACTIONS (6)
  - IMMUNE SYSTEM DISORDER [None]
  - CROHN'S DISEASE [None]
  - SINUSITIS [None]
  - RED BLOOD CELL COUNT INCREASED [None]
  - BRONCHITIS [None]
  - LYMPHADENOPATHY [None]
